FAERS Safety Report 4954530-4 (Version None)
Quarter: 2006Q1

REPORT INFORMATION
  Report Type: 
  Country: None (occurrence: None)
  Receive Date: 20060322
  Receipt Date: 20060310
  Transmission Date: 20060701
  Serious: Yes (Hospitalization)
  Sender: FDA-Public Use
  Company Number: 2006034630

PATIENT
  Age: 49 Year
  Sex: Female

DRUGS (5)
  1. XANAX [Suspect]
     Indication: ILL-DEFINED DISORDER
     Dosage: 0.25 MG), ORAL
     Route: 048
  2. MIRTAZAPINE [Concomitant]
  3. ZOLPIDEM TARTRATE [Concomitant]
  4. TETRAZEPAM (TETRAZEPAM) [Concomitant]
  5. PAROXETINE HCL [Concomitant]

REACTIONS (2)
  - COMA [None]
  - MULTIPLE DRUG OVERDOSE [None]
